FAERS Safety Report 7039805-X (Version None)
Quarter: 2010Q4

REPORT INFORMATION
  Report Type: 
  Country: None (occurrence: None)
  Receive Date: 20101012
  Receipt Date: 20101006
  Transmission Date: 20110411
  Serious: Yes (Death, Life-Threatening, Hospitalization, Disabling)
  Sender: FDA-Public Use
  Company Number: US-MERCK-1009USA04212

PATIENT
  Age: 83 Year
  Sex: Female

DRUGS (11)
  1. JANUVIA [Suspect]
     Indication: DIABETES MELLITUS
     Route: 048
     Dates: start: 20080101, end: 20100701
  2. AMIODARONE [Concomitant]
     Route: 065
  3. LISINOPRIL [Concomitant]
     Route: 048
  4. ASPIRIN [Concomitant]
     Route: 065
  5. SIMVASTATIN [Concomitant]
     Route: 048
  6. LASIX [Concomitant]
     Route: 065
  7. LEVOTHYROXINE SODIUM [Concomitant]
     Route: 065
  8. ALENDRONATE SODIUM [Concomitant]
     Route: 048
  9. METOPROLOL [Concomitant]
     Route: 065
  10. LUMIGAN [Concomitant]
     Route: 065
  11. DORZOLAMIDE HYDROCHLORIDE [Concomitant]
     Route: 047

REACTIONS (9)
  - ARTERIOSCLEROSIS CORONARY ARTERY [None]
  - CHOLELITHIASIS [None]
  - DYSPEPSIA [None]
  - ERUCTATION [None]
  - GASTRIC VARICES [None]
  - OEDEMA [None]
  - OESOPHAGEAL ULCER [None]
  - PANCREATIC CYST [None]
  - RENAL MASS [None]
